FAERS Safety Report 9062241 (Version 1)
Quarter: 2013Q1

REPORT INFORMATION
  Report Type: Spontaneous
  Country: US (occurrence: None)
  Receive Date: 20130122
  Receipt Date: 20130122
  Transmission Date: 20140127
  Serious: Yes (Other)
  Sender: FDA-Public Use
  Company Number: 1560695

PATIENT
  Age: 16 Year
  Sex: Female

DRUGS (4)
  1. ROCURONIUM BROMIDE [Suspect]
     Indication: INDUCTION OF ANAESTHESIA
     Dosage: NOT REPORTED . UNKNOWN, UNKNOWN
  2. (PROPOFOL) [Suspect]
     Indication: INDUCTION OF ANAESTHESIA
     Dosage: NOT REPORTED , UNKNOWN, UNKNOWN
  3. (ANTIBIOTICS ANTIBIOTIC PROPHYLAXIS (ANTIBIOTIC PROPHYLAXIS) [Concomitant]
  4. DEXAMETHASONE [Concomitant]

REACTIONS (5)
  - Sialoadenitis [None]
  - Dysphagia [None]
  - Swelling face [None]
  - Airway complication of anaesthesia [None]
  - Pharyngeal oedema [None]
